FAERS Safety Report 14170084 (Version 1)
Quarter: 2017Q4

REPORT INFORMATION
  Report Type: Spontaneous
  Country: CA (occurrence: CA)
  Receive Date: 20171108
  Receipt Date: 20171108
  Transmission Date: 20180321
  Serious: Yes (Other)
  Sender: FDA-Public Use
  Company Number: CA-PFIZER INC-2017480210

PATIENT
  Age: 40 Year
  Sex: Male
  Weight: 81 kg

DRUGS (8)
  1. CANNABIDIOL [Suspect]
     Active Substance: CANNABIDIOL
     Dosage: UNK
     Route: 065
  2. METHOTREXATE SODIUM. [Suspect]
     Active Substance: METHOTREXATE SODIUM
     Dosage: 25 MG, QWK
     Route: 058
  3. PLAQUENIL [Suspect]
     Active Substance: HYDROXYCHLOROQUINE SULFATE
     Indication: RHEUMATOID ARTHRITIS
     Dosage: UNK
     Route: 065
  4. FOLIC ACID. [Concomitant]
     Active Substance: FOLIC ACID
     Dosage: UNK
     Route: 065
  5. ENBREL [Suspect]
     Active Substance: ETANERCEPT
     Indication: RHEUMATOID ARTHRITIS
     Dosage: 50 MG, QWK
     Route: 065
  6. ENBREL [Suspect]
     Active Substance: ETANERCEPT
     Dosage: 50 MG, QWK
     Route: 065
  7. SULFASALAZINE. [Suspect]
     Active Substance: SULFASALAZINE
     Indication: RHEUMATOID ARTHRITIS
     Dosage: UNK
     Route: 065
  8. ARAVA [Suspect]
     Active Substance: LEFLUNOMIDE
     Indication: RHEUMATOID ARTHRITIS
     Dosage: UNK
     Route: 065

REACTIONS (19)
  - Drug use disorder [Unknown]
  - Fall [Unknown]
  - Joint swelling [Unknown]
  - Vomiting [Unknown]
  - Disease progression [Unknown]
  - Drug ineffective [Unknown]
  - Hypertension [Unknown]
  - Dyspnoea [Unknown]
  - Joint contracture [Unknown]
  - Stress [Unknown]
  - Alanine aminotransferase increased [Unknown]
  - Palpitations [Unknown]
  - Arthralgia [Unknown]
  - Loss of consciousness [Unknown]
  - Nausea [Unknown]
  - Amnesia [Unknown]
  - C-reactive protein increased [Unknown]
  - Drug dose omission [Unknown]
  - Liver function test increased [Unknown]
